FAERS Safety Report 6768279-9 (Version None)
Quarter: 2010Q2

REPORT INFORMATION
  Report Type: 
  Country: None (occurrence: None)
  Receive Date: 20100614
  Receipt Date: 20100607
  Transmission Date: 20101027
  Serious: Yes (Hospitalization, Other)
  Sender: FDA-Public Use
  Company Number: US-BIOGENIDEC-2009BI012613

PATIENT
  Age: 64 Year
  Sex: Female

DRUGS (3)
  1. TYSABRI [Suspect]
     Indication: MULTIPLE SCLEROSIS
     Route: 042
     Dates: start: 20080501, end: 20090304
  2. TEGRETOL [Concomitant]
     Indication: NEURALGIA
  3. TEGRETOL [Concomitant]
     Indication: MUSCLE SPASMS

REACTIONS (4)
  - MUSCLE SPASMS [None]
  - PAIN [None]
  - PANCYTOPENIA [None]
  - PLATELET COUNT DECREASED [None]
